FAERS Safety Report 16997708 (Version 1)
Quarter: 2019Q4

REPORT INFORMATION
  Report Type: Spontaneous
  Country: US (occurrence: US)
  Receive Date: 20191106
  Receipt Date: 20191106
  Transmission Date: 20200122
  Serious: No
  Sender: FDA-Public Use
  Company Number: US-ASTRAZENECA-2019SF44321

PATIENT
  Sex: Female

DRUGS (1)
  1. TAGRISSO [Suspect]
     Active Substance: OSIMERTINIB
     Dosage: UNKNOWN UNKNOWN
     Route: 048

REACTIONS (4)
  - Cough [Unknown]
  - Decreased appetite [Unknown]
  - Drug ineffective [Unknown]
  - Vomiting [Unknown]
